FAERS Safety Report 13276202 (Version 1)
Quarter: 2017Q1

REPORT INFORMATION
  Report Type: Spontaneous
  Country: GB (occurrence: GB)
  Receive Date: 20170228
  Receipt Date: 20170228
  Transmission Date: 20170428
  Serious: Yes (Disabling)
  Sender: FDA-Public Use
  Company Number: GB-GLAXOSMITHKLINE-GB2017024784

PATIENT
  Age: 56 Year
  Sex: Male
  Weight: 68 kg

DRUGS (29)
  1. CALCICHEW D3 [Concomitant]
     Active Substance: CALCIUM\CHOLECALCIFEROL
     Dosage: 1 DF, BID
     Route: 065
     Dates: start: 20160613
  2. TAMSULOSIN HYDROCHLORIDE. [Concomitant]
     Active Substance: TAMSULOSIN HYDROCHLORIDE
     Dosage: 1 DF, QD
     Route: 065
     Dates: start: 20160613
  3. VENTOLIN [Concomitant]
     Active Substance: ALBUTEROL SULFATE
     Dosage: 1 DF, UNK
     Route: 055
     Dates: start: 20160613
  4. ZOLPIDEM [Concomitant]
     Active Substance: ZOLPIDEM\ZOLPIDEM TARTRATE
     Indication: SLEEP DISORDER
     Dosage: 1-2 AT NIGHT.
     Route: 065
     Dates: start: 20161223
  5. CARBOCISTEINE [Concomitant]
     Active Substance: CARBOCYSTEINE
     Indication: PRODUCTIVE COUGH
     Dosage: 1 DF, TID
     Route: 065
     Dates: start: 20160613
  6. CO-AMOXICLAV [Concomitant]
     Active Substance: AMOXICILLIN\CLAVULANIC ACID
     Dosage: 1 DF, TID
     Route: 065
     Dates: start: 20161118, end: 20161123
  7. TRIMETHOPRIM. [Concomitant]
     Active Substance: TRIMETHOPRIM
     Dosage: 1 DF, BID
     Route: 065
     Dates: start: 20160613
  8. PARACETAMOL [Concomitant]
     Active Substance: ACETAMINOPHEN
     Dosage: TAKE ONE OR TWO UP TO FOUR TIMES A DAY
     Route: 065
     Dates: start: 20160613
  9. SODIUM CHLORIDE. [Concomitant]
     Active Substance: SODIUM CHLORIDE
     Dosage: USE AS DIRECTED
     Dates: start: 20160922
  10. ULTIBRO BREEZHALER [Concomitant]
     Active Substance: GLYCOPYRRONIUM\INDACATEROL
     Dosage: 1 DF, QD
     Route: 055
     Dates: start: 20170201
  11. UNIPHYLLIN [Concomitant]
     Active Substance: THEOPHYLLINE ANHYDROUS
     Dosage: 2 DF, BID
     Route: 065
     Dates: start: 20160613
  12. AMOXICILLIN. [Concomitant]
     Active Substance: AMOXICILLIN
     Dosage: 1 DF, TID
     Route: 065
     Dates: start: 20170103, end: 20170110
  13. ESOMEPRAZOLE [Concomitant]
     Active Substance: ESOMEPRAZOLE
     Dosage: 1 DF, QD
     Dates: start: 20160613
  14. FLUTICASONE PROPIONATE. [Concomitant]
     Active Substance: FLUTICASONE PROPIONATE
     Dosage: 1 DF, BID
     Route: 055
     Dates: start: 20160613, end: 20170103
  15. PREDNISOLONE. [Concomitant]
     Active Substance: PREDNISOLONE
     Dosage: 6 DF, QD
     Route: 065
     Dates: start: 20170210
  16. SALBUTAMOL [Concomitant]
     Active Substance: ALBUTEROL
     Dosage: 1 DF, QID
     Route: 055
     Dates: start: 20160613
  17. ANORO ELLIPTA [Suspect]
     Active Substance: UMECLIDINIUM BROMIDE\VILANTEROL TRIFENATATE
     Indication: PRODUCT USED FOR UNKNOWN INDICATION
     Dosage: UNK
     Route: 065
     Dates: start: 20170103
  18. ALENDRONIC ACID [Concomitant]
     Active Substance: ALENDRONIC ACID
     Dosage: 1 DF, WE
     Route: 065
     Dates: start: 20160613
  19. DOXYCYCLINE. [Concomitant]
     Active Substance: DOXYCYCLINE
     Dosage: 1 DF, QD,1 A DAY FOR 7 DAYS
     Route: 065
     Dates: start: 20160613
  20. AMITRIPTYLINE HYDROCHLORIDE. [Concomitant]
     Active Substance: AMITRIPTYLINE HYDROCHLORIDE
     Indication: DEPRESSION
     Dosage: 1 DF, QD,NIGHT
     Route: 065
     Dates: start: 20160613
  21. CIPROFLOXACIN. [Concomitant]
     Active Substance: CIPROFLOXACIN
     Dosage: 1 DF, BID
     Route: 065
     Dates: start: 20161121, end: 20161126
  22. CREON (AMYLASE + LIPASE + PROTEASE) [Concomitant]
     Dosage: USE 1-3 WITH SNACKS AND 3-5 WITH MAIN MEALS
     Route: 065
     Dates: start: 20160613
  23. HYDROCORTISONE. [Concomitant]
     Active Substance: HYDROCORTISONE
     Dosage: 5 DF, QD,2 MORNING, 2 LUNCHTIME, 1 EVENING
     Route: 065
     Dates: start: 20160613
  24. ZOPICLONE [Concomitant]
     Active Substance: ZOPICLONE
     Indication: INSOMNIA
     Dosage: AT NIGHT
     Route: 065
     Dates: start: 20160613, end: 20161223
  25. FERROUS FUMARATE [Concomitant]
     Active Substance: FERROUS FUMARATE
     Dosage: 1 DF, TID
     Route: 065
     Dates: start: 20161007
  26. MEBENDAZOLE. [Concomitant]
     Active Substance: MEBENDAZOLE
     Dosage: 5 ML, UNK,AS ONE-OFF DOSE
     Route: 065
     Dates: start: 20170120, end: 20170127
  27. REGURIN [Concomitant]
     Active Substance: TROSPIUM CHLORIDE
     Dosage: 1 DF, QD
     Route: 065
     Dates: start: 20160613
  28. TIOTROPIUM [Concomitant]
     Active Substance: TIOTROPIUM
     Dosage: 1 DF, QD
     Route: 055
     Dates: start: 20160613, end: 20170103
  29. TRAMULIEF SR [Concomitant]
     Indication: PAIN
     Dosage: 1 DF, BID
     Route: 065
     Dates: start: 20160613

REACTIONS (1)
  - Palpitations [Recovering/Resolving]

NARRATIVE: CASE EVENT DATE: 20170125
